FAERS Safety Report 19881673 (Version 2)
Quarter: 2021Q4

REPORT INFORMATION
  Report Type: Spontaneous
  Country: MY (occurrence: MY)
  Receive Date: 20210925
  Receipt Date: 20211209
  Transmission Date: 20220303
  Serious: Yes (Other)
  Sender: FDA-Public Use
  Company Number: MY-NOVARTISPH-NVSC2021MY215494

PATIENT
  Age: 66 Year
  Sex: Female

DRUGS (2)
  1. BROLUCIZUMAB [Suspect]
     Active Substance: BROLUCIZUMAB
     Indication: Product used for unknown indication
     Dosage: UNK(LOADING DOSE GROUP 3 MONTHLY INJECTION)
     Route: 065
     Dates: start: 20210702
  2. BROLUCIZUMAB [Suspect]
     Active Substance: BROLUCIZUMAB
     Dosage: UNK(LOADING DOSE GROUP 3 MONTHLY INJECTION)
     Route: 065
     Dates: start: 20210902

REACTIONS (5)
  - Iridocyclitis [Recovered/Resolved]
  - Keratic precipitates [Recovered/Resolved]
  - Anterior chamber cell [Recovered/Resolved]
  - Visual acuity reduced [Recovered/Resolved]
  - Vitreal cells [Recovered/Resolved]

NARRATIVE: CASE EVENT DATE: 20210917
